FAERS Safety Report 22612448 (Version 5)
Quarter: 2023Q4

REPORT INFORMATION
  Report Type: Spontaneous
  Country: PL (occurrence: PL)
  Receive Date: 20230617
  Receipt Date: 20231030
  Transmission Date: 20240110
  Serious: Yes (Other)
  Sender: FDA-Public Use
  Company Number: PL-VITABALANS-059-2023

PATIENT
  Age: 60 Year
  Sex: Male

DRUGS (35)
  1. PAROXETINE [Suspect]
     Active Substance: PAROXETINE
     Indication: Anxiety
     Dosage: 30 MILLIGRAM
     Route: 065
  2. PAROXETINE [Suspect]
     Active Substance: PAROXETINE
     Indication: Bipolar disorder
     Dosage: 40 MILLIGRAM
     Route: 065
  3. PAROXETINE [Suspect]
     Active Substance: PAROXETINE
     Indication: Depression
  4. PREGABALIN [Suspect]
     Active Substance: PREGABALIN
     Indication: Bipolar disorder
     Dosage: 150 MILLIGRAM, ONCE A DAY
     Route: 065
  5. PREGABALIN [Suspect]
     Active Substance: PREGABALIN
     Dosage: 150 MILLIGRAM, ONCE A DAY
     Route: 065
  6. ZOLPIDEM [Suspect]
     Active Substance: ZOLPIDEM TARTRATE
     Indication: Depression
     Dosage: 10 MILLIGRAM, ONCE A DAY
     Route: 065
  7. ZOLPIDEM [Suspect]
     Active Substance: ZOLPIDEM TARTRATE
     Indication: Sleep disorder
     Dosage: 10 MILLIGRAM, AT BED TIME
     Route: 065
  8. ZOLPIDEM [Suspect]
     Active Substance: ZOLPIDEM TARTRATE
     Indication: Bipolar disorder
  9. VENLAFAXINE [Suspect]
     Active Substance: VENLAFAXINE HYDROCHLORIDE
     Indication: Psychomotor retardation
     Dosage: 75 MG TO 150 MG/24 H
     Route: 065
  10. VENLAFAXINE [Suspect]
     Active Substance: VENLAFAXINE HYDROCHLORIDE
     Indication: Affective disorder
     Dosage: 300 MILLIGRAM, ONCE A DAY
     Route: 065
  11. VENLAFAXINE [Suspect]
     Active Substance: VENLAFAXINE HYDROCHLORIDE
     Indication: Anxiety
     Dosage: 150 MILLIGRAM, ONCE A DAY
     Route: 065
  12. VENLAFAXINE [Suspect]
     Active Substance: VENLAFAXINE HYDROCHLORIDE
     Indication: Bipolar disorder
     Dosage: 75 MILLIGRAM, ONCE A DAY
     Route: 065
  13. LAMOTRIGINE [Suspect]
     Active Substance: LAMOTRIGINE
     Indication: Bipolar disorder
     Dosage: 150 MILLIGRAM, ONCE A DAY
     Route: 065
  14. LAMOTRIGINE [Suspect]
     Active Substance: LAMOTRIGINE
     Indication: Anxiety
  15. LAMOTRIGINE [Suspect]
     Active Substance: LAMOTRIGINE
     Indication: Psychomotor retardation
  16. LAMOTRIGINE [Suspect]
     Active Substance: LAMOTRIGINE
     Indication: Affective disorder
  17. HYDROXYZINE [Suspect]
     Active Substance: HYDROXYZINE HYDROCHLORIDE
     Indication: Anxiety
     Dosage: 100 MILLIGRAM, ONCE A DAY
     Route: 065
  18. HYDROXYZINE [Suspect]
     Active Substance: HYDROXYZINE HYDROCHLORIDE
     Indication: Bipolar disorder
     Dosage: 125 MILLIGRAM, ONCE A DAY
     Route: 065
  19. LORAZEPAM [Suspect]
     Active Substance: LORAZEPAM
     Indication: Affective disorder
     Dosage: 8 MILLIGRAM
     Route: 065
  20. LORAZEPAM [Suspect]
     Active Substance: LORAZEPAM
     Indication: Psychomotor retardation
     Dosage: 2.5 MILLIGRAM, ONCE A DAY
     Route: 065
  21. LORAZEPAM [Suspect]
     Active Substance: LORAZEPAM
     Indication: Anxiety
     Dosage: 0.5 TO1MG, ONCE A DAY
     Route: 065
  22. LORAZEPAM [Suspect]
     Active Substance: LORAZEPAM
     Indication: Bipolar disorder
     Dosage: 1 MILLIGRAM
     Route: 065
  23. PROMETHAZINE [Suspect]
     Active Substance: PROMETHAZINE HYDROCHLORIDE
     Indication: Anxiety
     Dosage: UNK
     Route: 065
  24. PROMETHAZINE [Suspect]
     Active Substance: PROMETHAZINE HYDROCHLORIDE
     Indication: Bipolar disorder
     Dosage: 100 MILLIGRAM, ONCE A DAY
     Route: 065
  25. REBOXETINE [Suspect]
     Active Substance: REBOXETINE
     Indication: Depression
     Dosage: 4 MILLIGRAM, ONCE A DAY
     Route: 065
  26. REBOXETINE [Suspect]
     Active Substance: REBOXETINE
     Indication: Bipolar disorder
     Dosage: 8 MILLIGRAM, ONCE A DAY
     Route: 065
  27. REBOXETINE [Suspect]
     Active Substance: REBOXETINE
     Dosage: 4 MILLIGRAM, ONCE A DAY
     Route: 065
  28. REBOXETINE [Suspect]
     Active Substance: REBOXETINE
     Dosage: 8 MILLIGRAM, ONCE A DAY
     Route: 065
  29. QUETIAPINE [Suspect]
     Active Substance: QUETIAPINE
     Indication: Anxiety
     Dosage: 300 MILLIGRAM, ONCE A DAY
     Route: 065
  30. QUETIAPINE [Suspect]
     Active Substance: QUETIAPINE
     Indication: Bipolar disorder
  31. MIANSERIN [Suspect]
     Active Substance: MIANSERIN
     Indication: Sleep disorder
     Dosage: 30 MILLIGRAM, ONCE A DAY
     Route: 065
  32. LITHIUM [Concomitant]
     Active Substance: LITHIUM
     Indication: Psychomotor retardation
     Dosage: 1250-1500 MG ONCE A DAY
     Route: 065
  33. LITHIUM [Concomitant]
     Active Substance: LITHIUM
     Indication: Depression
     Dosage: 500 MILLIGRAM, ONCE A DAY
     Route: 065
  34. LITHIUM [Concomitant]
     Active Substance: LITHIUM
     Indication: Suicidal ideation
     Dosage: 1500 MILLIGRAM, ONCE A DAY (1500 MG/24 H)
     Route: 065
  35. LITHIUM [Concomitant]
     Active Substance: LITHIUM
     Indication: Bipolar disorder
     Dosage: 1250 MILLIGRAM, ONCE A DAY
     Route: 065

REACTIONS (17)
  - Drug dependence [Recovered/Resolved]
  - Dependence [Recovered/Resolved]
  - Drug withdrawal syndrome [Unknown]
  - Therapeutic product effect incomplete [Unknown]
  - Anxiety [Recovering/Resolving]
  - Cognitive disorder [Recovering/Resolving]
  - Depression [Recovering/Resolving]
  - Depressed mood [Recovering/Resolving]
  - Disturbance in attention [Recovering/Resolving]
  - Fear [Recovering/Resolving]
  - Impaired work ability [Recovering/Resolving]
  - Sleep disorder [Recovering/Resolving]
  - Hepatic enzyme increased [Unknown]
  - Withdrawal syndrome [Recovered/Resolved]
  - Therapeutic response decreased [Unknown]
  - Drug ineffective [Unknown]
  - Off label use [Unknown]
